FAERS Safety Report 8857168 (Version 1)
Quarter: 2012Q4

REPORT INFORMATION
  Report Type: 
  Country: US (occurrence: US)
  Receive Date: 20121024
  Receipt Date: 20121024
  Transmission Date: 20130627
  Serious: Yes (Other)
  Sender: FDA-Public Use
  Company Number: US-TEVA-365514USA

PATIENT
  Sex: Male

DRUGS (1)
  1. METRONIDAZOLE [Suspect]
     Indication: DIVERTICULITIS

REACTIONS (3)
  - Suicidal ideation [Unknown]
  - Parosmia [Recovering/Resolving]
  - Dysgeusia [Recovering/Resolving]
